FAERS Safety Report 6150517-7 (Version None)
Quarter: 2009Q2

REPORT INFORMATION
  Report Type: 
  Country: None (occurrence: None)
  Receive Date: 20090409
  Receipt Date: 20090403
  Transmission Date: 20091009
  Serious: Yes (Hospitalization, Other)
  Sender: FDA-Public Use
  Company Number: IL-ROXANE LABORATORIES, INC.-2009-RO-00338RO

PATIENT
  Age: 25 Year
  Sex: Male

DRUGS (22)
  1. MORPHINE [Suspect]
     Indication: PAIN
     Route: 048
  2. MORPHINE [Suspect]
     Route: 048
  3. MORPHINE [Suspect]
     Dosage: 100MG
     Route: 042
  4. MORPHINE [Suspect]
  5. MORPHINE [Suspect]
     Dosage: 90MG
     Route: 048
  6. MORPHINE [Suspect]
  7. MEPERIDINE HCL [Suspect]
     Indication: POSTOPERATIVE ANALGESIA
     Route: 030
  8. OXYCODONE HCL [Suspect]
     Indication: PAIN
     Dosage: 60MG
  9. OXYCODONE HCL [Suspect]
     Dosage: 40MG
  10. OXYCODONE HCL [Suspect]
     Dosage: 20MG
     Route: 048
  11. KETAMINE HCL [Suspect]
     Indication: PAIN
     Dosage: 250MG
  12. KETAMINE HCL [Suspect]
  13. KETAMINE HCL [Suspect]
     Dosage: 200MG
     Route: 042
  14. KETAMINE HCL [Suspect]
  15. KETAMINE HCL [Suspect]
  16. GABAPENTIN [Suspect]
     Indication: BURNING SENSATION
     Dosage: 400MG
     Route: 048
  17. AMITRIPTYLINE HCL [Suspect]
     Indication: BURNING SENSATION
  18. AMITRIPTYLINE HCL [Suspect]
     Dosage: 25MG
  19. CLONAZEPAM [Suspect]
     Indication: BURNING SENSATION
     Dosage: 1MG
  20. CLONAZEPAM [Suspect]
     Dosage: .25MG
  21. OXYCONTIN [Concomitant]
     Indication: PAIN
     Dosage: 40MG
  22. CARBAMAZEPINE [Concomitant]
     Indication: PAIN
     Dosage: 200MG

REACTIONS (3)
  - DEPRESSED LEVEL OF CONSCIOUSNESS [None]
  - DIZZINESS [None]
  - DRUG INEFFECTIVE [None]
